FAERS Safety Report 25760379 (Version 1)
Quarter: 2025Q3

REPORT INFORMATION
  Report Type: Report from Study
  Country: US (occurrence: US)
  Receive Date: 20250904
  Receipt Date: 20250904
  Transmission Date: 20251021
  Serious: Yes (Hospitalization)
  Sender: IONIS PHARMACEUTICALS
  Company Number: US-IONIS PHARMACEUTICALS, INC.-2025IS002873

PATIENT

DRUGS (1)
  1. TRYNGOLZA [Suspect]
     Active Substance: OLEZARSEN SODIUM
     Indication: Familial hypertriglyceridaemia
     Dosage: 80 MILLIGRAM, Q4W
     Route: 058

REACTIONS (2)
  - Diabetic ketoacidosis [Unknown]
  - Pancreatitis acute [Unknown]
